FAERS Safety Report 11147094 (Version 1)
Quarter: 2015Q2

REPORT INFORMATION
  Report Type: Report from Study
  Country: US (occurrence: US)
  Receive Date: 20150528
  Receipt Date: 20150528
  Transmission Date: 20150821
  Serious: Yes (Other)
  Sender: FDA-Public Use
  Company Number: US-SA-2014SA114793

PATIENT
  Age: 61 Year
  Sex: Female

DRUGS (3)
  1. BACLOFEN. [Concomitant]
     Active Substance: BACLOFEN
  2. AUBAGIO [Suspect]
     Active Substance: TERIFLUNOMIDE
     Indication: MULTIPLE SCLEROSIS
     Route: 048
     Dates: start: 20140521
  3. BETASERON [Concomitant]
     Active Substance: INTERFERON BETA-1B
     Indication: MULTIPLE SCLEROSIS
     Dates: start: 19980101, end: 20140518

REACTIONS (8)
  - Stress [Unknown]
  - Alopecia [Recovering/Resolving]
  - Urinary tract infection [Unknown]
  - Tendon disorder [Not Recovered/Not Resolved]
  - Joint swelling [Unknown]
  - Blood pressure increased [Recovering/Resolving]
  - Cartilage injury [Unknown]
  - Fall [Unknown]
